FAERS Safety Report 21950359 (Version 1)
Quarter: 2023Q1

REPORT INFORMATION
  Report Type: Spontaneous
  Country: US (occurrence: US)
  Receive Date: 20230203
  Receipt Date: 20230203
  Transmission Date: 20230418
  Serious: No
  Sender: FDA-Public Use
  Company Number: US-ORPHANEU-2019007593

PATIENT

DRUGS (2)
  1. CYSTADANE [Suspect]
     Active Substance: BETAINE
     Indication: Product used for unknown indication
     Dosage: UNK
  2. CYSTADANE [Suspect]
     Active Substance: BETAINE
     Dosage: 5 SCOOPS, BID

REACTIONS (2)
  - Gastroenteritis viral [Recovered/Resolved]
  - Product dose omission issue [Recovered/Resolved]

NARRATIVE: CASE EVENT DATE: 20190928
